FAERS Safety Report 10791860 (Version 1)
Quarter: 2015Q1

REPORT INFORMATION
  Report Type: Spontaneous
  Country: IN (occurrence: None)
  Receive Date: 20150211
  Receipt Date: 20150211
  Transmission Date: 20150721
  Serious: Yes (Hospitalization, Other)
  Sender: FDA-Public Use
  Company Number: 2015/003

PATIENT
  Age: 46 Year
  Sex: Female

DRUGS (2)
  1. LEVETIRACETAM (NO PREF. NAME) [Suspect]
     Active Substance: LEVETIRACETAM
     Indication: SEIZURE
  2. CEFTRIAXONE. [Concomitant]
     Active Substance: CEFTRIAXONE

REACTIONS (7)
  - Pyrexia [None]
  - Generalised tonic-clonic seizure [None]
  - Headache [None]
  - Status epilepticus [None]
  - Toxic encephalopathy [None]
  - Vomiting [None]
  - Nuchal rigidity [None]
